FAERS Safety Report 16590021 (Version 1)
Quarter: 2019Q3

REPORT INFORMATION
  Report Type: Other
  Country: US (occurrence: US)
  Receive Date: 20190718
  Receipt Date: 20190718
  Transmission Date: 20191004
  Serious: No
  Sender: FDA-Public Use
  Company Number: US-SWEDISH ORPHAN BIOVITRUM-2019US0492

PATIENT
  Sex: Male

DRUGS (8)
  1. COLCHICINE. [Concomitant]
     Active Substance: COLCHICINE
  2. PROBIOTIC [Concomitant]
     Active Substance: PROBIOTICS NOS
  3. NORTRIPTYLINE [Concomitant]
     Active Substance: NORTRIPTYLINE
  4. KINERET [Suspect]
     Active Substance: ANAKINRA
     Indication: PERICARDITIS
     Route: 058
     Dates: start: 20190127
  5. PREDNISONE. [Concomitant]
     Active Substance: PREDNISONE
  6. XIFAXAN [Concomitant]
     Active Substance: RIFAXIMIN
  7. SYNTHROID [Concomitant]
     Active Substance: LEVOTHYROXINE SODIUM
  8. PANTOPRAZOLE [Concomitant]
     Active Substance: PANTOPRAZOLE

REACTIONS (2)
  - Injection site erythema [Unknown]
  - Pruritus [Unknown]

NARRATIVE: CASE EVENT DATE: 2019
